FAERS Safety Report 4480726-4 (Version None)
Quarter: 2004Q4

REPORT INFORMATION
  Report Type: 
  Country: None (occurrence: None)
  Receive Date: 20041019
  Receipt Date: 20041004
  Transmission Date: 20050328
  Serious: Yes (Other)
  Sender: FDA-Public Use
  Company Number: 2004-DE-05120GD

PATIENT
  Sex: Male

DRUGS (1)
  1. CLONIDINE HCL [Suspect]
     Indication: TOURETTE'S DISORDER

REACTIONS (4)
  - DISEASE PROGRESSION [None]
  - IMPAIRED WORK ABILITY [None]
  - OBSESSIVE-COMPULSIVE DISORDER [None]
  - TOURETTE'S DISORDER [None]
